FAERS Safety Report 6919782-X (Version None)
Quarter: 2010Q3

REPORT INFORMATION
  Report Type: 
  Country: None (occurrence: None)
  Receive Date: 20100811
  Receipt Date: 19980716
  Transmission Date: 20110219
  Serious: Yes (Disabling)
  Sender: FDA-Public Use
  Company Number: FR-CEPHALON-2010004050

PATIENT
  Age: 65 Year
  Sex: Female

DRUGS (1)
  1. MODAFINIL [Suspect]
     Indication: HYPERSOMNIA
     Route: 048

REACTIONS (2)
  - BLINDNESS [None]
  - DIPLOPIA [None]
